FAERS Safety Report 25553820 (Version 1)
Quarter: 2025Q3

REPORT INFORMATION
  Report Type: Other
  Country: GB (occurrence: GB)
  Receive Date: 20250715
  Receipt Date: 20250715
  Transmission Date: 20251020
  Serious: Yes (Other)
  Sender: MACLEODS
  Company Number: GB-MHRA-TPP20963411C11113354YC1751557447801

PATIENT

DRUGS (11)
  1. RIVAROXABAN [Suspect]
     Active Substance: RIVAROXABAN
     Indication: Product used for unknown indication
     Dosage: TAKE ONE DAILY WITH FOOD.
     Route: 065
  2. PREDNISOLONE [Concomitant]
     Active Substance: PREDNISOLONE
     Indication: Ill-defined disorder
     Dosage: TAKE 4 TABLETS ONCE A DAY IN THE MORNING FOR 5 ...
     Route: 065
     Dates: start: 20250606, end: 20250611
  3. NORMASOL [Concomitant]
     Indication: Ill-defined disorder
     Route: 065
     Dates: start: 20250624, end: 20250625
  4. AMLODIPINE [Concomitant]
     Active Substance: AMLODIPINE BESYLATE
     Indication: Ill-defined disorder
     Dosage: ONE TO BE TAKEN EACH DAY
     Route: 065
     Dates: start: 20241216
  5. DIGOXIN [Concomitant]
     Active Substance: DIGOXIN
     Indication: Ill-defined disorder
     Dosage: ONE TO BE TAKEN DAILY
     Route: 065
     Dates: start: 20241216
  6. EDOXABAN [Concomitant]
     Active Substance: EDOXABAN
     Indication: Ill-defined disorder
     Dosage: ONE TO BE TAKEN EACH DAY
     Route: 065
     Dates: start: 20241216, end: 20250528
  7. LOPERAMIDE [Concomitant]
     Active Substance: LOPERAMIDE
     Indication: Ill-defined disorder
     Dosage: ONE TABLET TO BE TAKEN THREE TIMES A DAY IF REQ...
     Route: 065
     Dates: start: 20241216
  8. LOSARTAN [Concomitant]
     Active Substance: LOSARTAN
     Indication: Ill-defined disorder
     Dosage: ONE TO BE TAKEN EACH DAY, TAKE AT NIGHT
     Route: 065
     Dates: start: 20241216
  9. NEBIVOLOL [Concomitant]
     Active Substance: NEBIVOLOL
     Indication: Ill-defined disorder
     Dosage: TAKE 1 TABLET ONCE A DAY
     Route: 065
     Dates: start: 20241216
  10. CALCIUM CARBONATE\CHOLECALCIFEROL [Concomitant]
     Active Substance: CALCIUM CARBONATE\CHOLECALCIFEROL
     Indication: Ill-defined disorder
     Dosage: TAKE 1 A DAY - AT LUNCHTIME - TAKE AT LEAST 2 H...
     Route: 065
     Dates: start: 20241216
  11. APIXABAN [Concomitant]
     Active Substance: APIXABAN
     Indication: Ill-defined disorder
     Dosage: TAKE ONE TWICE DAILY
     Route: 065

REACTIONS (2)
  - Dry mouth [Unknown]
  - Weight decreased [Unknown]
